FAERS Safety Report 8591369-5 (Version None)
Quarter: 2012Q3

REPORT INFORMATION
  Report Type: 
  Country: None (occurrence: None)
  Receive Date: 20120803
  Receipt Date: 20120803
  Transmission Date: 20120928
  Serious: No
  Sender: FDA-Public Use
  Company Number: None

PATIENT
  Age: 67 Year
  Sex: Female
  Weight: 58.9676 kg

DRUGS (1)
  1. ROPIVACAINE DRIP, UNKNOWN STRENGTH DO NOT KNOW [Suspect]
     Indication: PAIN
     Dosage: DRIP, PUMP AS NEED IV
     Route: 042
     Dates: start: 20120726, end: 20120727

REACTIONS (5)
  - HYPERVENTILATION [None]
  - ANXIETY [None]
  - PAIN [None]
  - INFUSION RELATED REACTION [None]
  - HEART RATE INCREASED [None]
